FAERS Safety Report 6107523-8 (Version None)
Quarter: 2009Q1

REPORT INFORMATION
  Report Type: 
  Country: None (occurrence: None)
  Receive Date: 20090302
  Receipt Date: 20080118
  Transmission Date: 20090719
  Serious: Yes (Hospitalization)
  Sender: FDA-Public Use
  Company Number: WAES 0801USA03906

PATIENT
  Sex: Male

DRUGS (1)
  1. PRINIVIL [Suspect]
     Dosage: PO
     Route: 048

REACTIONS (2)
  - COUGH [None]
  - SYNCOPE [None]
